FAERS Safety Report 14334822 (Version 2)
Quarter: 2018Q1

REPORT INFORMATION
  Report Type: Report from Study
  Country: None (occurrence: CA)
  Receive Date: 20171228
  Receipt Date: 20180119
  Transmission Date: 20180509
  Serious: Yes (Hospitalization, Other)
  Sender: FDA-Public Use
  Company Number: CA-ABBVIE-17K-028-2206806-00

PATIENT
  Age: 62 Year
  Sex: Female
  Weight: 75.36 kg

DRUGS (1)
  1. HUMIRA [Suspect]
     Active Substance: ADALIMUMAB
     Indication: CROHN^S DISEASE
     Route: 058
     Dates: start: 20161216

REACTIONS (9)
  - Intestinal stenosis [Recovered/Resolved]
  - Ultrasound abdomen abnormal [Unknown]
  - Abdominal pain [Unknown]
  - Biliary colic [Unknown]
  - Coronary artery stenosis [Unknown]
  - High frequency ablation [Unknown]
  - Transaminases increased [Unknown]
  - Chest pain [Unknown]
  - Post procedural complication [Unknown]

NARRATIVE: CASE EVENT DATE: 2017
